FAERS Safety Report 22146450 (Version 1)
Quarter: 2023Q1

REPORT INFORMATION
  Report Type: Spontaneous
  Country: GB (occurrence: GB)
  Receive Date: 20230328
  Receipt Date: 20230328
  Transmission Date: 20230418
  Serious: Yes (Other)
  Sender: FDA-Public Use
  Company Number: GB-LEO Pharma-350734

PATIENT
  Sex: Male

DRUGS (1)
  1. ENSTILAR [Suspect]
     Active Substance: BETAMETHASONE DIPROPIONATE\CALCIPOTRIENE HYDRATE
     Indication: Psoriasis
     Dosage: DOSAGE : TOPICAL DAILY?GIVEN DURATION : BEYOND 4 WEEKS
     Route: 003

REACTIONS (2)
  - Overdose [Unknown]
  - Adrenal insufficiency [Unknown]
